FAERS Safety Report 4442053-0 (Version None)
Quarter: 2004Q3

REPORT INFORMATION
  Report Type: 
  Country: None (occurrence: None)
  Receive Date: 20040901
  Receipt Date: 20040819
  Transmission Date: 20050211
  Serious: Yes (Hospitalization)
  Sender: FDA-Public Use
  Company Number: HQWYE429319AUG04

PATIENT
  Age: 85 Year
  Sex: Female

DRUGS (6)
  1. PANTOPRAZOLE SODIUM [Suspect]
     Dosage: ^SOME DOSE FORM SOMETIMES^
     Route: 048
     Dates: start: 20040706, end: 20040712
  2. PREDNISOLONE [Suspect]
     Dosage: ^SOME DOSE FORM SOMETIME^
     Route: 048
     Dates: start: 20040705, end: 20040711
  3. MAXAIR [Concomitant]
  4. PULMICORT [Concomitant]
  5. SEREVENT [Concomitant]
  6. VERAPAMIL [Concomitant]

REACTIONS (2)
  - HYPONATRAEMIA [None]
  - SUBILEUS [None]
